FAERS Safety Report 6046332-5 (Version None)
Quarter: 2009Q1

REPORT INFORMATION
  Report Type: 
  Country: None (occurrence: None)
  Receive Date: 20090121
  Receipt Date: 20090121
  Transmission Date: 20090719
  Serious: Yes (Death)
  Sender: FDA-Public Use
  Company Number: None

PATIENT
  Age: 77 Year
  Sex: Male
  Weight: 86.1834 kg

DRUGS (3)
  1. LEXAPRO [Suspect]
     Indication: DEPRESSION
     Dosage: 10MG THEN UPPED TO 20MG ONCE A DAY PO
     Route: 048
     Dates: start: 20081021, end: 20081108
  2. TRAZODONE HCL [Suspect]
     Indication: DEPRESSION
     Dosage: 100MG- 1 D PO
     Route: 048
     Dates: start: 20081106, end: 20081108
  3. AMBIEN CR [Suspect]
     Indication: SLEEP DISORDER
     Dosage: L N PO
     Route: 048
     Dates: start: 20081106, end: 20081108

REACTIONS (2)
  - CONDITION AGGRAVATED [None]
  - DEPRESSION [None]
